FAERS Safety Report 9816876 (Version 1)
Quarter: 2014Q1

REPORT INFORMATION
  Report Type: Spontaneous
  Country: US (occurrence: US)
  Receive Date: 20140114
  Receipt Date: 20140114
  Transmission Date: 20141002
  Serious: Yes (Other)
  Sender: FDA-Public Use
  Company Number: US-ENDO PHARMACEUTICALS INC.-ENDC20130040

PATIENT
  Age: 77 Year
  Sex: Female

DRUGS (1)
  1. ENDOCET 10MG/325MG [Suspect]
     Indication: PAIN
     Dosage: 30/975 MG
     Route: 048

REACTIONS (2)
  - Drug dispensing error [None]
  - Drug ineffective [Not Recovered/Not Resolved]
